FAERS Safety Report 15210015 (Version 1)
Quarter: 2018Q3

REPORT INFORMATION
  Report Type: Spontaneous
  Country: US (occurrence: US)
  Receive Date: 20180727
  Receipt Date: 20180727
  Transmission Date: 20181010
  Serious: Yes (Hospitalization, Other)
  Sender: FDA-Public Use
  Company Number: US-BRISTOL-MYERS SQUIBB COMPANY-BMS-2018-068261

PATIENT
  Age: 71 Year
  Sex: Female

DRUGS (1)
  1. SPRYCEL [Suspect]
     Active Substance: DASATINIB
     Indication: CHRONIC MYELOID LEUKAEMIA
     Dosage: 140 MG, UNK
     Route: 065
     Dates: start: 20180712

REACTIONS (5)
  - Hyperbilirubinaemia [Unknown]
  - Renal failure [Unknown]
  - Haemorrhage [Unknown]
  - Factor X deficiency [Unknown]
  - Contusion [Unknown]

NARRATIVE: CASE EVENT DATE: 20180717
